FAERS Safety Report 7187150-4 (Version None)
Quarter: 2010Q4

REPORT INFORMATION
  Report Type: 
  Country: None (occurrence: None)
  Receive Date: 20101222
  Receipt Date: 20101209
  Transmission Date: 20110411
  Serious: Yes (Hospitalization)
  Sender: FDA-Public Use
  Company Number: US-ELI_LILLY_AND_COMPANY-US201012003034

PATIENT
  Sex: Female

DRUGS (6)
  1. FORTEO [Suspect]
     Indication: OSTEOPOROSIS
     Dosage: 20 UG, DAILY (1/D)
     Dates: start: 20100301
  2. CYCLOSPORINE [Concomitant]
     Dosage: 75 MG, 2/D
  3. LORA TAB [Concomitant]
     Dosage: 11.25 MG, EVERY 4 HRS
  4. ARICEPT [Concomitant]
     Dosage: 10 MG, DAILY (1/D)
  5. OMEPRAZOLE [Concomitant]
     Dosage: 20 MG, DAILY (1/D)
  6. LEXAPRO [Concomitant]
     Dosage: 10 MG, DAILY (1/D)

REACTIONS (2)
  - CONTUSION [None]
  - HOSPITALISATION [None]
